FAERS Safety Report 4698189-2 (Version None)
Quarter: 2005Q2

REPORT INFORMATION
  Report Type: 
  Country: None (occurrence: None)
  Receive Date: 20050623
  Receipt Date: 20050309
  Transmission Date: 20051028
  Serious: Yes (Other)
  Sender: FDA-Public Use
  Company Number: US-MERCK-0503USA01948

PATIENT
  Sex: Female
  Weight: 86 kg

DRUGS (9)
  1. VIOXX [Suspect]
     Indication: OSTEOARTHRITIS
     Route: 048
     Dates: start: 20000922, end: 20010318
  2. VIOXX [Suspect]
     Route: 048
     Dates: start: 20010815, end: 20040901
  3. VIOXX [Suspect]
     Route: 048
     Dates: start: 20030115
  4. NORVASC [Concomitant]
     Indication: HYPERTENSION
     Route: 065
     Dates: start: 19930101
  5. PROPOXYPHENE NAPSYLATE AND ACETAMINOPHEN [Concomitant]
     Route: 065
  6. PREDNISONE [Concomitant]
     Route: 065
  7. LORAZEPAM [Concomitant]
     Route: 065
  8. HYDROCHLOROTHIAZIDE [Concomitant]
     Route: 065
  9. DICYCLOMINE HYDROCHLORIDE [Concomitant]
     Route: 065

REACTIONS (16)
  - ANGLE CLOSURE GLAUCOMA [None]
  - ANXIETY [None]
  - AORTIC ANEURYSM [None]
  - BACK PAIN [None]
  - CEREBROVASCULAR ACCIDENT [None]
  - CYSTITIS [None]
  - DEPRESSION [None]
  - INTERVERTEBRAL DISC PROTRUSION [None]
  - IRRITABLE BOWEL SYNDROME [None]
  - LIVER FUNCTION TEST ABNORMAL [None]
  - NEUROPATHY [None]
  - PAIN IN EXTREMITY [None]
  - POLYMYALGIA RHEUMATICA [None]
  - POLYNEUROPATHY [None]
  - TARSAL TUNNEL SYNDROME [None]
  - TRANSIENT ISCHAEMIC ATTACK [None]
